FAERS Safety Report 25049825 (Version 1)
Quarter: 2025Q1

REPORT INFORMATION
  Report Type: Spontaneous
  Country: US (occurrence: None)
  Receive Date: 20250306
  Receipt Date: 20250306
  Transmission Date: 20250408
  Serious: Yes (Death)
  Sender: FDA-CTU
  Company Number: None

PATIENT
  Sex: Female

DRUGS (1)
  1. VIGABATRIN [Suspect]
     Active Substance: VIGABATRIN
     Indication: Seizure
     Route: 048
     Dates: start: 20190513

REACTIONS (1)
  - Death [None]
